FAERS Safety Report 24716981 (Version 2)
Quarter: 2025Q1

REPORT INFORMATION
  Report Type: Spontaneous
  Country: US (occurrence: US)
  Receive Date: 20241210
  Receipt Date: 20250116
  Transmission Date: 20250409
  Serious: Yes (Other)
  Sender: ROCHE
  Company Number: US-ROCHE-10000153845

PATIENT
  Age: 95 Year
  Sex: Female

DRUGS (1)
  1. VABYSMO [Suspect]
     Active Substance: FARICIMAB-SVOA
     Indication: Neovascular age-related macular degeneration
     Route: 065
     Dates: end: 20240212

REACTIONS (3)
  - Endophthalmitis [Unknown]
  - Dementia [Unknown]
  - Uveitis [Unknown]

NARRATIVE: CASE EVENT DATE: 20241202
